FAERS Safety Report 7989688-6 (Version None)
Quarter: 2011Q4

REPORT INFORMATION
  Report Type: 
  Country: None (occurrence: None)
  Receive Date: 20111215
  Receipt Date: 20111212
  Transmission Date: 20120403
  Serious: Yes (Death)
  Sender: FDA-Public Use
  Company Number: ADR-2011-11745

PATIENT
  Age: 61 Year
  Sex: Female

DRUGS (5)
  1. DILAUDID [Concomitant]
  2. DROPERIDOL [Concomitant]
  3. BUPIVACAINE HCL [Concomitant]
  4. BACLOFEN [Suspect]
     Indication: CANCER PAIN
     Dosage: 239.73 MCG/DAY, INTRATHECAL
     Route: 037
  5. CLONIDINE [Concomitant]

REACTIONS (1)
  - DEATH [None]
